FAERS Safety Report 6403209-0 (Version None)
Quarter: 2009Q4

REPORT INFORMATION
  Report Type: 
  Country: None (occurrence: None)
  Receive Date: 20091015
  Receipt Date: 20091015
  Transmission Date: 20100525
  Serious: Yes (Hospitalization)
  Sender: FDA-Public Use
  Company Number: None

PATIENT
  Age: 12 Hour
  Sex: Female
  Weight: 3.98 kg

DRUGS (2)
  1. WELLBUTRIN [Suspect]
     Indication: DEPRESSION
     Dosage: 300MG DAILY PO DURING THE PREGNANCY
     Route: 048
  2. LEXAPRO [Suspect]
     Dosage: 20 MG DAILY PO
     Route: 048

REACTIONS (2)
  - MATERNAL DRUGS AFFECTING FOETUS [None]
  - TREMOR NEONATAL [None]
